FAERS Safety Report 6547246-4 (Version None)
Quarter: 2010Q1

REPORT INFORMATION
  Report Type: 
  Country: None (occurrence: None)
  Receive Date: 20100122
  Receipt Date: 20100112
  Transmission Date: 20100710
  Serious: Yes (Hospitalization)
  Sender: FDA-Public Use
  Company Number: US-JNJFOC-20100104316

PATIENT
  Sex: Male
  Weight: 60.78 kg

DRUGS (5)
  1. REMICADE [Suspect]
     Indication: COLITIS ULCERATIVE
     Route: 042
  2. COLAZAL [Concomitant]
     Indication: COLITIS ULCERATIVE
  3. MULTI-VITAMINS [Concomitant]
  4. ENTOCORT EC [Concomitant]
     Indication: COLITIS ULCERATIVE
  5. TUMS [Concomitant]

REACTIONS (1)
  - APPENDICITIS [None]
